FAERS Safety Report 11059774 (Version 1)
Quarter: 2015Q2

REPORT INFORMATION
  Report Type: Other
  Country: GB (occurrence: GB)
  Receive Date: 20150423
  Receipt Date: 20150423
  Transmission Date: 20150821
  Serious: Yes (Other)
  Sender: FDA-Public Use
  Company Number: GB-APOTEX-2015AP008183

PATIENT
  Age: 74 Year
  Sex: Male
  Weight: 78.1 kg

DRUGS (3)
  1. ASPIRIN. [Concomitant]
     Active Substance: ASPIRIN
     Indication: PRODUCT USED FOR UNKNOWN INDICATION
     Route: 065
  2. PERINDOPRIL TABLETS [Suspect]
     Active Substance: PERINDOPRIL
     Indication: HYPERTENSION
     Dosage: 8 MG, QD
     Route: 048
  3. INDAPAMIDE HEMIHYDRATE [Concomitant]
     Indication: PRODUCT USED FOR UNKNOWN INDICATION
     Dosage: 2.5 MG, UNK
     Route: 065

REACTIONS (4)
  - Heart rate increased [Recovered/Resolved]
  - Hypersensitivity [Unknown]
  - Swelling face [Recovered/Resolved]
  - Lip swelling [Recovered/Resolved]
